FAERS Safety Report 23736746 (Version 2)
Quarter: 2024Q4

REPORT INFORMATION
  Report Type: Spontaneous
  Country: US (occurrence: US)
  Receive Date: 20240412
  Receipt Date: 20241014
  Transmission Date: 20250115
  Serious: No
  Sender: PFIZER
  Company Number: US-PFIZER INC-202400084522

PATIENT
  Age: 84 Year
  Sex: Female

DRUGS (5)
  1. XELJANZ XR [Suspect]
     Active Substance: TOFACITINIB CITRATE
     Dosage: 11 MG, 1X/DAY
     Route: 048
     Dates: start: 201909
  2. ALBUTEROL SULFATE [Concomitant]
     Active Substance: ALBUTEROL SULFATE
  3. OYSTER SHELL CALCIUM WITH VITAMIN D [CALCIUM;COLECALCIFEROL] [Concomitant]
     Dosage: OYSTER SHELL CALCIUM 500/D 1000
  4. PRILOSEC [Concomitant]
     Active Substance: OMEPRAZOLE MAGNESIUM
     Dosage: OTC
  5. D [Concomitant]
     Dosage: D 1000

REACTIONS (10)
  - Pain in extremity [Unknown]
  - Myalgia [Unknown]
  - Arthralgia [Unknown]
  - Gait disturbance [Unknown]
  - Pain [Unknown]
  - Swelling [Unknown]
  - Eyelid disorder [Recovering/Resolving]
  - Pruritus [Recovering/Resolving]
  - Dizziness [Unknown]
  - Yellow skin [Unknown]
